FAERS Safety Report 7534899-7 (Version None)
Quarter: 2011Q2

REPORT INFORMATION
  Report Type: 
  Country: None (occurrence: None)
  Receive Date: 20110609
  Receipt Date: 20081126
  Transmission Date: 20111010
  Serious: Yes (Hospitalization, Other)
  Sender: FDA-Public Use
  Company Number: PHMT2006CA01389

PATIENT
  Sex: Male

DRUGS (10)
  1. GABAPENTIN [Concomitant]
  2. NAPROXEN [Concomitant]
  3. SANDOSTATIN LAR [Suspect]
     Dosage: 30 MG, QMO
     Route: 030
  4. HYDROMORPHONE HCL [Concomitant]
  5. PLAVIX [Concomitant]
  6. FOLIC ACID [Concomitant]
  7. METOPROLOL [Concomitant]
  8. HYDROMORPHONE HCL [Concomitant]
  9. SANDOSTATIN LAR [Suspect]
     Indication: CARCINOID TUMOUR
     Dosage: 20 MG, QMO
     Dates: start: 20050630
  10. LIPITOR [Concomitant]

REACTIONS (2)
  - DEVICE LEAKAGE [None]
  - RENAL FAILURE [None]
